FAERS Safety Report 25016279 (Version 1)
Quarter: 2025Q1

REPORT INFORMATION
  Report Type: Spontaneous
  Country: US (occurrence: US)
  Receive Date: 20250227
  Receipt Date: 20250227
  Transmission Date: 20250408
  Serious: Yes (Other)
  Sender: PURACAP PHARMACEUTICAL LLC
  Company Number: US-PURACAP-US-2025EPCSPO00184

PATIENT

DRUGS (1)
  1. BENZONATATE [Suspect]
     Active Substance: BENZONATATE
     Indication: Product used for unknown indication
     Route: 065

REACTIONS (5)
  - Anaphylactic reaction [Unknown]
  - Pharyngeal swelling [Unknown]
  - Dysphagia [Unknown]
  - Dysgeusia [Unknown]
  - Product taste abnormal [Unknown]
